FAERS Safety Report 6534848-4 (Version None)
Quarter: 2010Q1

REPORT INFORMATION
  Report Type: 
  Country: None (occurrence: None)
  Receive Date: 20100112
  Receipt Date: 20100106
  Transmission Date: 20100710
  Serious: Yes (Other)
  Sender: FDA-Public Use
  Company Number: PHHY2009CA31987

PATIENT
  Sex: Male

DRUGS (3)
  1. EXJADE [Suspect]
     Indication: THALASSAEMIA
     Dosage: 1500 MG, QD
     Route: 048
     Dates: start: 20070701
  2. EXJADE [Suspect]
     Indication: IRON OVERLOAD
  3. ADVAIR DISKUS 100/50 [Concomitant]

REACTIONS (7)
  - ABDOMINAL PAIN UPPER [None]
  - ASTHENIA [None]
  - DECREASED APPETITE [None]
  - FATIGUE [None]
  - HAEMATOCHEZIA [None]
  - POLLAKIURIA [None]
  - RESTLESSNESS [None]
